FAERS Safety Report 8599184-3 (Version None)
Quarter: 2012Q3

REPORT INFORMATION
  Report Type: 
  Country: None (occurrence: None)
  Receive Date: 20120816
  Receipt Date: 20120813
  Transmission Date: 20120928
  Serious: Yes (Hospitalization)
  Sender: FDA-Public Use
  Company Number: JP-BAYER-2012-080950

PATIENT
  Age: 67 Year
  Sex: Male

DRUGS (3)
  1. CLOPIDOGREL BISULFATE [Concomitant]
     Dosage: UNK
     Dates: start: 20111201
  2. ASPIRIN [Suspect]
     Dosage: UNK
     Route: 048
     Dates: start: 20111201
  3. RABEPRAZOLE SODIUM [Concomitant]
     Dosage: UNK
     Route: 048
     Dates: start: 20111201

REACTIONS (2)
  - INTUSSUSCEPTION [None]
  - SMALL INTESTINAL HAEMORRHAGE [None]
